FAERS Safety Report 9602742 (Version 5)
Quarter: 2014Q2

REPORT INFORMATION
  Report Type: Spontaneous
  Country: US (occurrence: US)
  Receive Date: 20131007
  Receipt Date: 20140408
  Transmission Date: 20141212
  Serious: Yes (Other)
  Sender: FDA-Public Use
  Company Number: US-PFIZER INC-2013282342

PATIENT
  Age: 78 Year
  Sex: Female

DRUGS (15)
  1. LATANOPROST [Suspect]
     Indication: OPEN ANGLE GLAUCOMA
     Dosage: UNK
     Dates: start: 20120114
  2. LATANOPROST [Suspect]
     Dosage: UNK
     Dates: start: 20120210
  3. LATANOPROST [Suspect]
     Dosage: UNK
     Dates: start: 20120302
  4. LATANOPROST [Suspect]
     Dosage: UNK
     Dates: start: 20120331
  5. LATANOPROST [Suspect]
     Dosage: UNK
     Dates: start: 20120426
  6. LATANOPROST [Suspect]
     Dosage: UNK
     Dates: start: 20120521
  7. LATANOPROST [Suspect]
     Dosage: UNK
     Dates: start: 20120701
  8. LATANOPROST [Suspect]
     Dosage: UNK
     Dates: start: 20120722
  9. LATANOPROST [Suspect]
     Dosage: UNK
     Dates: start: 20131219, end: 20140105
  10. LATANOPROST [Suspect]
     Dosage: UNK
     Dates: start: 20131219, end: 20140105
  11. LATANOPROST [Suspect]
     Dosage: UNK
     Dates: start: 20140105, end: 20140129
  12. LATANOPROST [Suspect]
     Dosage: UNK
     Dates: start: 20140105, end: 20140129
  13. LATANOPROST [Suspect]
     Dosage: UNK (1 DROP TO BOTH EYES IN THE EVENING)
     Route: 047
  14. COSOPT [Concomitant]
     Dosage: UNK, (OU, QHS) (BOTH EYES AT EVERY BEDTIME)
     Route: 047
  15. ALPHAGAN P [Concomitant]
     Dosage: UNK, 2X/DAY (OU, BID) (BOTH EYES TWICE DAILY)
     Route: 047

REACTIONS (4)
  - Macular degeneration [Unknown]
  - Circumstance or information capable of leading to medication error [Unknown]
  - Anxiety [Unknown]
  - Product quality issue [Unknown]
